FAERS Safety Report 18903240 (Version 1)
Quarter: 2021Q1

REPORT INFORMATION
  Report Type: Spontaneous
  Country: US (occurrence: US)
  Receive Date: 20210216
  Receipt Date: 20210216
  Transmission Date: 20210420
  Serious: Yes (Other)
  Sender: FDA-Public Use
  Company Number: None

PATIENT
  Age: 35 Year
  Sex: Male
  Weight: 92.25 kg

DRUGS (1)
  1. FINASTERIDE. [Suspect]
     Active Substance: FINASTERIDE
     Indication: ANDROGENETIC ALOPECIA
     Route: 048
     Dates: start: 20150101, end: 20210115

REACTIONS (6)
  - Depression [None]
  - Sexual dysfunction [None]
  - Libido decreased [None]
  - Penis disorder [None]
  - Erectile dysfunction [None]
  - Weight increased [None]

NARRATIVE: CASE EVENT DATE: 20190101
